FAERS Safety Report 7998057-4 (Version None)
Quarter: 2011Q4

REPORT INFORMATION
  Report Type: 
  Country: None (occurrence: None)
  Receive Date: 20111221
  Receipt Date: 20101220
  Transmission Date: 20120403
  Serious: No
  Sender: FDA-Public Use
  Company Number: US-GLAXOSMITHKLINE-A0900616A

PATIENT
  Age: 72 Year
  Sex: Female

DRUGS (8)
  1. EVISTA [Concomitant]
  2. ZEGERID [Concomitant]
  3. SYMBICORT [Concomitant]
  4. TRAMADOL HCL [Concomitant]
  5. MELOXICAM [Suspect]
     Indication: ARTHRITIS
     Dosage: 15MG PER DAY
     Dates: start: 20050101
  6. LOVAZA [Suspect]
     Indication: BLOOD TRIGLYCERIDES INCREASED
     Dosage: 2CAP TWICE PER DAY
     Route: 048
     Dates: start: 20100101
  7. LEVOTHYROXINE SODIUM [Concomitant]
  8. PROAIR HFA [Concomitant]

REACTIONS (2)
  - INSOMNIA [None]
  - DRUG INTERACTION [None]
